FAERS Safety Report 12624004 (Version 3)
Quarter: 2016Q4

REPORT INFORMATION
  Report Type: Report from Study
  Country: None (occurrence: PR)
  Receive Date: 20160804
  Receipt Date: 20161026
  Transmission Date: 20170207
  Serious: Yes (Hospitalization, Other)
  Sender: FDA-Public Use
  Company Number: PR-ABBVIE-16P-131-1690408-00

PATIENT
  Age: 72 Year
  Sex: Male

DRUGS (2)
  1. DUOPA [Suspect]
     Active Substance: CARBIDOPA\LEVODOPA
     Indication: PARKINSON^S DISEASE
     Route: 050
     Dates: start: 20160714, end: 20160809
  2. PLAVIX [Concomitant]
     Active Substance: CLOPIDOGREL BISULFATE
     Indication: CORONARY ARTERY DISEASE

REACTIONS (11)
  - Haemoglobin abnormal [Unknown]
  - Stoma site haemorrhage [Recovered/Resolved]
  - Stoma site cellulitis [Recovered/Resolved]
  - Stoma site haemorrhage [Recovered/Resolved]
  - Anaemia [Not Recovered/Not Resolved]
  - Stoma site haemorrhage [Recovered/Resolved]
  - Weight decreased [Not Recovered/Not Resolved]
  - Melaena [Unknown]
  - Stoma site haemorrhage [Unknown]
  - Stoma site haemorrhage [Recovered/Resolved]
  - Stoma site haemorrhage [Recovered/Resolved]

NARRATIVE: CASE EVENT DATE: 2016
